FAERS Safety Report 11714808 (Version 1)
Quarter: 2015Q4

REPORT INFORMATION
  Report Type: Spontaneous
  Country: DE (occurrence: DE)
  Receive Date: 20151109
  Receipt Date: 20151109
  Transmission Date: 20160304
  Serious: Yes (Hospitalization)
  Sender: FDA-Public Use
  Company Number: DE-AKORN PHARMACEUTICALS-2015AKN00660

PATIENT
  Age: 79 Year
  Sex: Female

DRUGS (5)
  1. COSOPT [Suspect]
     Active Substance: DORZOLAMIDE HYDROCHLORIDE\TIMOLOL MALEATE
     Indication: GLAUCOMA
     Dosage: 1 GTT, BID, OU; OPHTH.
     Route: 047
     Dates: start: 20150127
  2. ASPIRIN. [Concomitant]
     Active Substance: ASPIRIN
     Dosage: 100 MG, UNK
  3. MICARDIS PLUS [Concomitant]
     Active Substance: HYDROCHLOROTHIAZIDE\TELMISARTAN
     Dosage: 12.5/40  (OR 12/40 ) MG TABLETS, IN MORNING
     Dates: end: 201508
  4. GELO REVOICE [Concomitant]
     Dosage: UNK TABLETS, UNK
  5. AMLODIPINE [Concomitant]
     Active Substance: AMLODIPINE BESYLATE
     Dosage: UNK TABLETS, 1X/DAY IN EVENING

REACTIONS (1)
  - Blood electrolytes decreased [Unknown]

NARRATIVE: CASE EVENT DATE: 20150805
